FAERS Safety Report 20411016 (Version 1)
Quarter: 2022Q1

REPORT INFORMATION
  Report Type: Other
  Country: None (occurrence: US)
  Receive Date: 20220201
  Receipt Date: 20220201
  Transmission Date: 20220423
  Serious: Yes (Other)
  Sender: FDA-Public Use
  Company Number: US-Knight Therapeutics (USA) Inc.-2124498

PATIENT
  Age: 62 Year
  Sex: Male

DRUGS (16)
  1. IMPAVIDO [Suspect]
     Active Substance: MILTEFOSINE
     Indication: Keratitis
     Route: 048
  2. METHYLPREDNISOLONE [Concomitant]
     Active Substance: METHYLPREDNISOLONE
     Route: 042
  3. PREDNISONE [Concomitant]
     Active Substance: PREDNISONE
     Route: 048
  4. CHLORHEXIDINE [Concomitant]
     Active Substance: CHLORHEXIDINE
     Route: 061
  5. POLIHEXANIDE [Concomitant]
     Active Substance: POLIHEXANIDE
     Route: 061
  6. VORICONAZOLE [Concomitant]
     Active Substance: VORICONAZOLE
     Route: 061
  7. VORICONAZOLE [Concomitant]
     Active Substance: VORICONAZOLE
     Route: 048
  8. CEFAZOLIN [Concomitant]
     Active Substance: CEFAZOLIN
     Route: 061
  9. PENTAMIDINE [Concomitant]
     Active Substance: PENTAMIDINE
     Route: 042
  10. UNSPECIFIED INGREDIENT [Concomitant]
     Active Substance: UNSPECIFIED INGREDIENT
     Route: 048
  11. LOTEPREDNOL [Concomitant]
     Active Substance: LOTEPREDNOL
     Route: 061
  12. ACYCLOVIR [Concomitant]
     Active Substance: ACYCLOVIR
     Route: 048
  13. NEOMYCIN-POLYMYXIN-DEXAMETHASONE OINTMENT [Concomitant]
     Route: 061
  14. GATIFLOXACIN EYE DROPS [Concomitant]
     Route: 047
  15. CYCLOPENTOLATE EYE DROPS [Concomitant]
     Route: 047
  16. PREDNISOLONE ACETATE [Concomitant]
     Active Substance: PREDNISOLONE ACETATE
     Route: 061

REACTIONS (6)
  - Diabetic ketoacidosis [Unknown]
  - Hypotension [Unknown]
  - Transaminases increased [Unknown]
  - Drug effective for unapproved indication [Recovered/Resolved]
  - Off label use [Unknown]
  - Therapy cessation [Unknown]
